FAERS Safety Report 20229266 (Version 1)
Quarter: 2021Q4

REPORT INFORMATION
  Report Type: Spontaneous
  Country: ES (occurrence: ES)
  Receive Date: 20211225
  Receipt Date: 20211225
  Transmission Date: 20220303
  Serious: Yes (Death)
  Sender: FDA-Public Use
  Company Number: None

PATIENT
  Age: 67 Year
  Sex: Male

DRUGS (3)
  1. FENTANYL [Suspect]
     Active Substance: FENTANYL
     Indication: Bone pain
     Route: 061
     Dates: start: 20201217, end: 20201220
  2. FENTANYL [Suspect]
     Active Substance: FENTANYL
     Route: 042
     Dates: start: 20201217, end: 20201220
  3. CEFTRIAXONE [Concomitant]
     Active Substance: CEFTRIAXONE
     Indication: Pneumonia
     Route: 042
     Dates: start: 20201214, end: 20201218

REACTIONS (4)
  - Lung neoplasm malignant [Fatal]
  - Rash pruritic [Recovered/Resolved]
  - Off label use [Unknown]
  - Incorrect route of product administration [Unknown]

NARRATIVE: CASE EVENT DATE: 20201220
